FAERS Safety Report 19266561 (Version 1)
Quarter: 2021Q2

REPORT INFORMATION
  Report Type: Spontaneous
  Country: FR (occurrence: FR)
  Receive Date: 20210517
  Receipt Date: 20210517
  Transmission Date: 20210717
  Serious: Yes (Other)
  Sender: FDA-Public Use
  Company Number: FR-SA-2021SA155733

PATIENT
  Age: 27 Year
  Sex: Female
  Weight: 62.5 kg

DRUGS (5)
  1. LANSOPRAZOLE. [Suspect]
     Active Substance: LANSOPRAZOLE
     Indication: PROPHYLAXIS
     Dosage: 30 MG, QD (30 MILLIGRAM, QD)
     Route: 048
     Dates: end: 20210419
  2. CABLIVI [Suspect]
     Active Substance: CAPLACIZUMAB-YHDP
     Indication: IMMUNE THROMBOCYTOPENIA
     Dosage: 10 MG, QD (10 MILLIGRAM, QD)
     Route: 041
     Dates: start: 20210211, end: 20210316
  3. RITUXIMAB. [Suspect]
     Active Substance: RITUXIMAB
     Indication: IMMUNE THROMBOCYTOPENIA
     Dosage: 600 MILLIGRAM
     Route: 041
     Dates: start: 20210212, end: 20210303
  4. SULFAMETHOXAZOLE/TRIMETHOPRIM [Suspect]
     Active Substance: SULFAMETHOXAZOLE\TRIMETHOPRIM
     Indication: ANTIFUNGAL PROPHYLAXIS
     Dosage: UNK UNK, Q3W (UNK UNK, Q3WEEKS)
     Route: 048
     Dates: start: 202102, end: 20210319
  5. CORTANCYL [Concomitant]
     Active Substance: PREDNISONE
     Indication: IMMUNE THROMBOCYTOPENIA
     Dosage: 10 MG, QD (10 MILLIGRAM, QD)
     Route: 048
     Dates: start: 202102

REACTIONS (1)
  - Neutropenia [Recovered/Resolved]

NARRATIVE: CASE EVENT DATE: 20210419
